FAERS Safety Report 6278063-0 (Version None)
Quarter: 2009Q3

REPORT INFORMATION
  Report Type: 
  Country: None (occurrence: None)
  Receive Date: 20090722
  Receipt Date: 20090710
  Transmission Date: 20100115
  Serious: Yes (Death, Hospitalization, Other)
  Sender: FDA-Public Use
  Company Number: PHHO2009FR05014

PATIENT

DRUGS (6)
  1. RAD 666 RAD+TAB [Suspect]
     Indication: RENAL CANCER METASTATIC
     Dosage: 10 MG, QD
     Route: 048
     Dates: start: 20081026, end: 20090106
  2. BISOPROLOL [Concomitant]
  3. AMLOR [Concomitant]
  4. OMEPRAZOLE [Concomitant]
  5. TERCIAN [Concomitant]
  6. DURAGESIC-100 [Concomitant]

REACTIONS (5)
  - BLOOD GLUCOSE ABNORMAL [None]
  - DIABETES MELLITUS [None]
  - PULMONARY EMBOLISM [None]
  - RALES [None]
  - WHITE BLOOD CELL DISORDER [None]
